FAERS Safety Report 7575236-1 (Version None)
Quarter: 2011Q2

REPORT INFORMATION
  Report Type: 
  Country: None (occurrence: None)
  Receive Date: 20110627
  Receipt Date: 20090502
  Transmission Date: 20111010
  Serious: Yes (Death, Other)
  Sender: FDA-Public Use
  Company Number: US-BAYER-200920337NA

PATIENT
  Age: 77 Year
  Sex: Male
  Weight: 68 kg

DRUGS (16)
  1. ATENOLOL [Concomitant]
     Dosage: 50 MG, QD
     Route: 048
     Dates: start: 20000901, end: 20061001
  2. AVAPRO [Concomitant]
     Dosage: 300MG
     Route: 048
     Dates: start: 20050801, end: 20070101
  3. NITROGLYCERIN [Concomitant]
     Dosage: TITRATED
     Route: 042
     Dates: start: 20070129
  4. TRASYLOL [Suspect]
     Dosage: LOADIN DOSE - 200ML WITH NO FOLLOWIN INFUSION
     Route: 042
     Dates: start: 20070129, end: 20070129
  5. RED BLOOD CELLS [Concomitant]
     Dosage: UNK
     Dates: start: 20070129
  6. NORVASC [Concomitant]
     Dosage: 10 MG, QD
     Route: 048
     Dates: start: 20020501
  7. VANCOMYCIN [Concomitant]
     Dosage: 1 GRAM
     Route: 042
     Dates: start: 20070129
  8. DOBUTAMINE HCL [Concomitant]
     Dosage: TITRATED
     Route: 042
     Dates: start: 20070129
  9. IBUPROFEN [Concomitant]
     Dosage: 800 MG, TID
     Route: 048
     Dates: start: 20020501
  10. MANNITOL [Concomitant]
     Dosage: 25GRAMS
     Dates: start: 20070129, end: 20070129
  11. HEPARIN [Concomitant]
     Dosage: 38,000 UNITS
     Dates: start: 20070129, end: 20070129
  12. HEPARIN [Concomitant]
     Dosage: 35,000 UNITS
     Dates: start: 20070129
  13. TRASYLOL [Suspect]
     Indication: PRODUCT USED FOR UNKNOWN INDICATION
     Dosage: TEST DOSE - 1ML, 200ML CARDIOPULMONARY BYPASS PRIME
     Route: 042
     Dates: start: 20070129, end: 20070129
  14. PROTAMINE SULFATE [Concomitant]
     Dosage: 250MG
     Route: 042
     Dates: start: 20070129, end: 20070129
  15. PLATELETS [Concomitant]
     Dosage: UNK
     Dates: start: 20070129
  16. FENTANYL [Concomitant]
     Dosage: 200MCG
     Route: 042
     Dates: start: 20070129

REACTIONS (13)
  - RENAL IMPAIRMENT [None]
  - UNEVALUABLE EVENT [None]
  - ANHEDONIA [None]
  - ANXIETY [None]
  - EMOTIONAL DISTRESS [None]
  - PAIN [None]
  - RENAL FAILURE [None]
  - RENAL INJURY [None]
  - STRESS [None]
  - INJURY [None]
  - DEATH [None]
  - FEAR [None]
  - MULTI-ORGAN FAILURE [None]
